FAERS Safety Report 19520177 (Version 2)
Quarter: 2021Q3

REPORT INFORMATION
  Report Type: Report from Study
  Country: CO (occurrence: CO)
  Receive Date: 20210712
  Receipt Date: 20210722
  Transmission Date: 20211014
  Serious: Yes (Other)
  Sender: FDA-Public Use
  Company Number: CO-BAYER-2021-130481

PATIENT
  Age: 76 Year
  Sex: Male

DRUGS (3)
  1. XOFIGO [Suspect]
     Active Substance: RADIUM RA-223 DICHLORIDE
     Indication: HORMONE-REFRACTORY PROSTATE CANCER
     Dosage: 55 KBQ/KG, 1 APPLICATION A MONTH FOR 6 MONTHS
     Route: 042
     Dates: start: 20210527, end: 20210527
  2. XOFIGO [Suspect]
     Active Substance: RADIUM RA-223 DICHLORIDE
     Indication: HORMONE-REFRACTORY PROSTATE CANCER
     Dosage: 55 KBQ/KG, 1 APPLICATION A MONTH FOR 6 MONTHS
     Route: 042
     Dates: start: 20210626, end: 20210626
  3. XOFIGO [Suspect]
     Active Substance: RADIUM RA-223 DICHLORIDE
     Indication: HORMONE-REFRACTORY PROSTATE CANCER
     Dosage: 55 KBQ/KG, 1 APPLICATION A MONTH FOR 6 MONTHS
     Route: 042
     Dates: start: 20210421, end: 20210421

REACTIONS (9)
  - Decreased appetite [Not Recovered/Not Resolved]
  - Hormone-refractory prostate cancer [None]
  - Metastases to liver [None]
  - Contusion [Not Recovered/Not Resolved]
  - Asthenia [Not Recovered/Not Resolved]
  - Influenza [Not Recovered/Not Resolved]
  - Headache [Not Recovered/Not Resolved]
  - Headache [Not Recovered/Not Resolved]
  - Syncope [Not Recovered/Not Resolved]

NARRATIVE: CASE EVENT DATE: 20210421
